FAERS Safety Report 19899445 (Version 1)
Quarter: 2021Q3

REPORT INFORMATION
  Report Type: Spontaneous
  Country: US (occurrence: US)
  Receive Date: 20210929
  Receipt Date: 20210929
  Transmission Date: 20211014
  Serious: Yes (Hospitalization)
  Sender: FDA-Public Use
  Company Number: None

PATIENT
  Age: 62 Year
  Sex: Female

DRUGS (1)
  1. AUBAGIO [Suspect]
     Active Substance: TERIFLUNOMIDE
     Dosage: ?          OTHER DOSE:14;?
     Route: 048
     Dates: start: 20210301

REACTIONS (2)
  - Urinary tract infection [None]
  - Product dose omission issue [None]

NARRATIVE: CASE EVENT DATE: 20210927
